FAERS Safety Report 19362136 (Version 1)
Quarter: 2021Q2

REPORT INFORMATION
  Report Type: Spontaneous
  Country: FR (occurrence: FR)
  Receive Date: 20210603
  Receipt Date: 20210603
  Transmission Date: 20210717
  Serious: Yes (Hospitalization)
  Sender: FDA-Public Use
  Company Number: FR-TEVA-2021-FR-1917692

PATIENT
  Age: 53 Year
  Sex: Male

DRUGS (9)
  1. TABAC (POUDRE DE) [Suspect]
     Active Substance: TOBACCO LEAF
     Dosage: 1 DOSAGE FORMS DAILY;
     Route: 055
  2. BUPRENORPHINE. [Suspect]
     Active Substance: BUPRENORPHINE
     Dosage: 34MG
     Route: 048
     Dates: start: 20200109, end: 20200109
  3. COCAINE [Suspect]
     Active Substance: COCAINE
     Dosage: UNSPECIFIED
     Route: 065
     Dates: start: 20200109, end: 20200109
  4. DIAZEPAM. [Suspect]
     Active Substance: DIAZEPAM
     Dosage: 150MG
     Route: 048
     Dates: start: 20200109, end: 20200109
  5. TERCIAN [Suspect]
     Active Substance: CYAMEMAZINE
     Dosage: 2500MG
     Route: 048
     Dates: start: 20200109, end: 20200109
  6. SERESTA [Suspect]
     Active Substance: OXAZEPAM
     Dosage: 1550MG
     Route: 048
     Dates: start: 20200109, end: 20200109
  7. ALCOOL [Suspect]
     Active Substance: ALCOHOL
     Dosage: 2L BEER / DAY
     Route: 048
  8. SUBUTEX [Suspect]
     Active Substance: BUPRENORPHINE HYDROCHLORIDE
     Dosage: 40MG
     Route: 048
     Dates: start: 20200109, end: 20200109
  9. HEROIN [Suspect]
     Active Substance: DIAMORPHINE
     Dosage: UNSPECIFIED
     Route: 042

REACTIONS (6)
  - Coma [Recovered/Resolved]
  - Rhabdomyolysis [Recovered/Resolved]
  - Drug abuse [Not Recovered/Not Resolved]
  - Hypersensitivity pneumonitis [Recovering/Resolving]
  - Hypoxia [Recovered/Resolved]
  - Miosis [Recovering/Resolving]

NARRATIVE: CASE EVENT DATE: 20200109
